FAERS Safety Report 5655234-5 (Version None)
Quarter: 2008Q1

REPORT INFORMATION
  Report Type: 
  Country: None (occurrence: None)
  Receive Date: 20080307
  Receipt Date: 20080218
  Transmission Date: 20080703
  Serious: Yes (Congenital Anomaly)
  Sender: FDA-Public Use
  Company Number: A0690844A

PATIENT
  Sex: Female

DRUGS (7)
  1. PAXIL CR [Suspect]
     Indication: DEPRESSION
     Dosage: 12.5MG PER DAY
     Dates: start: 20030901, end: 20050501
  2. PAROXETINE HCL [Suspect]
     Indication: DEPRESSION
     Dosage: 10MG PER DAY
     Dates: start: 20050401, end: 20050501
  3. CEPHALEXIN [Concomitant]
     Dates: start: 20050601
  4. ZOFRAN [Concomitant]
     Dates: start: 20050601
  5. NITROFURANTOIN [Concomitant]
     Dates: start: 20051101
  6. VITAMIN TAB [Concomitant]
     Dates: start: 20050401, end: 20060101
  7. ONE SOURCE ACTIVE KIDS-VITAMIN [Concomitant]
     Dates: start: 20070801

REACTIONS (10)
  - AORTIC VALVE INCOMPETENCE [None]
  - ATRIAL SEPTAL DEFECT [None]
  - CARDIAC MURMUR [None]
  - COARCTATION OF THE AORTA [None]
  - CONGENITAL ANOMALY [None]
  - CONGENITAL AORTIC STENOSIS [None]
  - CONGENITAL AORTIC VALVE INCOMPETENCE [None]
  - DRUG EXPOSURE DURING PREGNANCY [None]
  - LEFT VENTRICULAR DYSFUNCTION [None]
  - LEFT VENTRICULAR HYPERTROPHY [None]
